FAERS Safety Report 24675064 (Version 1)
Quarter: 2024Q4

REPORT INFORMATION
  Report Type: Spontaneous
  Country: US (occurrence: US)
  Receive Date: 20241128
  Receipt Date: 20241128
  Transmission Date: 20250114
  Serious: No
  Sender: BAUSCH AND LOMB
  Company Number: US-BAUSCH-BL-2024-017239

PATIENT
  Sex: Male

DRUGS (3)
  1. IPRATROPIUM BROMIDE [Suspect]
     Active Substance: IPRATROPIUM BROMIDE
     Indication: Rhinorrhoea
     Dosage: 2 SPRAYS IN EACH NOSTRIL TWICE DAILY.
     Route: 045
     Dates: start: 2020
  2. IPRATROPIUM BROMIDE [Suspect]
     Active Substance: IPRATROPIUM BROMIDE
     Dosage: 2 SPRAYS IN EACH NOSTRIL THREE TIME DAILY.
     Route: 045
     Dates: end: 2023
  3. AZELASTINE [Concomitant]
     Active Substance: AZELASTINE
     Indication: Rhinorrhoea
     Route: 045

REACTIONS (1)
  - Drug ineffective [Unknown]
